FAERS Safety Report 20712308 (Version 5)
Quarter: 2022Q3

REPORT INFORMATION
  Report Type: Report from Study
  Country: CA (occurrence: CA)
  Receive Date: 20220415
  Receipt Date: 20220930
  Transmission Date: 20221026
  Serious: Yes (Other)
  Sender: FDA-Public Use
  Company Number: CA-ABBVIE-22K-028-4332255-00

PATIENT
  Age: 49 Year
  Sex: Female

DRUGS (5)
  1. RINVOQ [Suspect]
     Active Substance: UPADACITINIB
     Indication: Rheumatoid arthritis
     Route: 048
     Dates: start: 20210807, end: 2022
  2. RINVOQ [Suspect]
     Active Substance: UPADACITINIB
     Indication: Rheumatoid arthritis
     Route: 048
     Dates: start: 2022, end: 202203
  3. RINVOQ [Suspect]
     Active Substance: UPADACITINIB
     Indication: Rheumatoid arthritis
     Route: 048
     Dates: start: 2022, end: 202208
  4. RINVOQ [Suspect]
     Active Substance: UPADACITINIB
     Indication: Rheumatoid arthritis
     Route: 048
     Dates: start: 2022
  5. ACTEMRA [Suspect]
     Active Substance: TOCILIZUMAB
     Indication: Product used for unknown indication
     Route: 065

REACTIONS (23)
  - Lens dislocation [Unknown]
  - Vision blurred [Unknown]
  - Metamorphopsia [Unknown]
  - Skin burning sensation [Unknown]
  - Discharge [Unknown]
  - Urinary tract infection [Recovered/Resolved]
  - Urinary tract infection [Recovered/Resolved]
  - Eye swelling [Not Recovered/Not Resolved]
  - Corneal oedema [Not Recovered/Not Resolved]
  - Illness [Unknown]
  - Corneal oedema [Not Recovered/Not Resolved]
  - Pneumonia [Unknown]
  - Eye inflammation [Not Recovered/Not Resolved]
  - Nausea [Unknown]
  - Headache [Unknown]
  - Micturition urgency [Unknown]
  - Skin abrasion [Unknown]
  - Heat stroke [Unknown]
  - Rheumatoid arthritis [Unknown]
  - Urinary tract infection [Unknown]
  - Fatigue [Unknown]
  - Blood pressure increased [Unknown]
  - Intraocular pressure increased [Unknown]

NARRATIVE: CASE EVENT DATE: 20210807
